FAERS Safety Report 23201958 (Version 1)
Quarter: 2023Q4

REPORT INFORMATION
  Report Type: Spontaneous
  Country: US (occurrence: None)
  Receive Date: 20231118
  Receipt Date: 20231118
  Transmission Date: 20240109
  Serious: No
  Sender: FDA-Public Use
  Company Number: None

PATIENT
  Sex: Male

DRUGS (1)
  1. SPRYCEL [Suspect]
     Active Substance: DASATINIB
     Indication: Philadelphia positive chronic myeloid leukaemia

REACTIONS (8)
  - Anal incontinence [None]
  - Urinary incontinence [None]
  - Dysgeusia [None]
  - Discoloured vomit [None]
  - Impaired driving ability [None]
  - Dizziness [None]
  - Dysstasia [None]
  - Lip dry [None]
